FAERS Safety Report 9463620 (Version 1)
Quarter: 2013Q3

REPORT INFORMATION
  Report Type: Report from Study
  Country: JP (occurrence: JP)
  Receive Date: 20130819
  Receipt Date: 20130819
  Transmission Date: 20140515
  Serious: Yes (Hospitalization)
  Sender: FDA-Public Use
  Company Number: PHHY2013JP089051

PATIENT
  Age: 73 Year
  Sex: Male
  Weight: 67 kg

DRUGS (15)
  1. AFINITOR [Suspect]
     Indication: METASTATIC RENAL CELL CARCINOMA
     Dosage: 10 MG, DAILY
     Route: 048
     Dates: start: 20110725, end: 20110812
  2. AFINITOR [Suspect]
     Dosage: 5 MG, DAILY
     Route: 048
     Dates: start: 20110815
  3. AZUNOL #1 [Concomitant]
     Indication: PROPHYLAXIS
     Dosage: 25 UNK, UNK
     Dates: start: 20110725
  4. RASILEZ [Concomitant]
     Dosage: 150 MG, UNK
     Route: 048
  5. PURSENID [Concomitant]
     Dosage: 24 MG, UNK
     Route: 048
     Dates: start: 20111205, end: 20120131
  6. NIVADIL [Concomitant]
     Dosage: 8 MG, UNK
     Route: 048
  7. MAINTATE [Concomitant]
     Dosage: 5 MG, UNK
     Route: 048
  8. MAINTATE [Concomitant]
     Dosage: 2.5 MG, UNK
     Route: 048
  9. OLMETEC [Concomitant]
     Dosage: 20 MG, UNK
     Route: 048
  10. HARNAL [Concomitant]
     Dosage: 0.2 MG, UNK
     Route: 048
  11. VESICARE [Concomitant]
     Dosage: 10 MG, UNK
     Route: 048
  12. VESICARE [Concomitant]
     Dosage: 5 MG, UNK
     Route: 048
  13. MUCOSTA [Concomitant]
     Dosage: 200 MG, UNK
     Route: 048
     Dates: start: 20120214
  14. TAKEPRON [Concomitant]
     Dosage: 15 MG, UNK
     Route: 048
  15. LETRAC [Concomitant]
     Dosage: 120 MG, UNK
     Route: 048
     Dates: start: 20120214

REACTIONS (1)
  - Ileus [Recovered/Resolved]
